FAERS Safety Report 4787269-9 (Version None)
Quarter: 2005Q3

REPORT INFORMATION
  Report Type: 
  Country: None (occurrence: None)
  Receive Date: 20050927
  Receipt Date: 20050617
  Transmission Date: 20060218
  Serious: No
  Sender: FDA-Public Use
  Company Number: USA0506100777

PATIENT
  Age: 24 Year
  Sex: Female

DRUGS (1)
  1. STRATTERA [Suspect]
     Indication: ATTENTION DEFICIT/HYPERACTIVITY DISORDER
     Dosage: 40 MG DAY

REACTIONS (6)
  - ANGER [None]
  - DRUG INEFFECTIVE [None]
  - FEELING JITTERY [None]
  - IRRITABILITY [None]
  - NERVOUSNESS [None]
  - PALPITATIONS [None]
